FAERS Safety Report 8478713-4 (Version None)
Quarter: 2012Q2

REPORT INFORMATION
  Report Type: 
  Country: None (occurrence: None)
  Receive Date: 20120629
  Receipt Date: 20120626
  Transmission Date: 20120825
  Serious: Yes (Other)
  Sender: FDA-Public Use
  Company Number: DE-ROCHE-1074655

PATIENT

DRUGS (6)
  1. AMLODIPINE [Concomitant]
     Indication: HYPERTENSION
     Dosage: HALF DAILY
     Route: 048
  2. ZELBORAF [Suspect]
     Indication: MALIGNANT MELANOMA
     Route: 048
     Dates: start: 20120505, end: 20120512
  3. PANTOPRAZOLE [Concomitant]
     Indication: GASTRITIS
     Route: 048
  4. METO [Concomitant]
     Indication: HYPERTENSION
     Dosage: HALF DAILY
     Route: 048
  5. MOLSIDOMIN [Concomitant]
     Dosage: HALF DAILY
     Route: 048
  6. ASPIRIN [Concomitant]
     Indication: CEREBRAL ISCHAEMIA
     Route: 048

REACTIONS (4)
  - RASH [None]
  - LIVER FUNCTION TEST ABNORMAL [None]
  - RENAL FAILURE [None]
  - DERMATITIS ALLERGIC [None]
